FAERS Safety Report 5100636-9 (Version None)
Quarter: 2006Q3

REPORT INFORMATION
  Report Type: 
  Country: None (occurrence: None)
  Receive Date: 20060906
  Receipt Date: 20060828
  Transmission Date: 20061208
  Serious: Yes (Hospitalization)
  Sender: FDA-Public Use
  Company Number: CA-2006-019630

PATIENT
  Age: 18 Year
  Sex: Female
  Weight: 77 kg

DRUGS (6)
  1. YASMIN [Suspect]
     Indication: ACNE
     Dosage: 1 TAB (S), 1X/DAY, ORAL
     Route: 048
     Dates: start: 20060604, end: 20060716
  2. MINOCYCLINE HCL [Concomitant]
  3. STIEVA-A (TRETINOIN) [Concomitant]
  4. CENTRUM (VITAMINS NOS, MINERALS NOS) [Concomitant]
  5. ASCORBIC ACID [Concomitant]
  6. FERROUS SULFATE TAB [Concomitant]

REACTIONS (4)
  - CEREBRAL INFARCTION [None]
  - DEHYDRATION [None]
  - INTRACRANIAL VENOUS SINUS THROMBOSIS [None]
  - SUPERIOR SAGITTAL SINUS THROMBOSIS [None]
